FAERS Safety Report 11095230 (Version 1)
Quarter: 2015Q2

REPORT INFORMATION
  Report Type: Spontaneous
  Country: US (occurrence: US)
  Receive Date: 20150506
  Receipt Date: 20150506
  Transmission Date: 20150821
  Serious: No
  Sender: FDA-Public Use
  Company Number: US-SA-2014SA124743

PATIENT
  Age: 4 Year
  Sex: Female

DRUGS (2)
  1. APIDRA [Suspect]
     Active Substance: INSULIN GLULISINE
     Indication: TYPE 1 DIABETES MELLITUS
     Dosage: DOSAGE- PUMP CONTINUOUS?FREQUENCY: CONTINEOUS INFUSION
     Route: 065
     Dates: start: 2014
  2. APIDRA [Suspect]
     Active Substance: INSULIN GLULISINE
     Indication: TYPE 1 DIABETES MELLITUS
     Dosage: DOSAGE- PUMP CONTINUOUS?FREQUENCY: CONTINEOUS INFUSION
     Route: 065
     Dates: start: 2014

REACTIONS (1)
  - Blood glucose increased [Unknown]
